FAERS Safety Report 5220845-8 (Version None)
Quarter: 2007Q1

REPORT INFORMATION
  Report Type: 
  Country: None (occurrence: None)
  Receive Date: 20070123
  Receipt Date: 20070109
  Transmission Date: 20070707
  Serious: Yes (Hospitalization)
  Sender: FDA-Public Use
  Company Number: PAR_1240_2007

PATIENT
  Age: 28 Year
  Sex: Female

DRUGS (3)
  1. IBUPROFEN [Suspect]
     Indication: BACK PAIN
     Dosage: DF PO
     Route: 048
     Dates: start: 20061204, end: 20061218
  2. ACETAMINOPHEN AND CODEINE PHOSPHATE [Concomitant]
  3. FLUOXETINE [Concomitant]

REACTIONS (1)
  - DUODENAL ULCER PERFORATION [None]
